FAERS Safety Report 25281024 (Version 2)
Quarter: 2025Q3

REPORT INFORMATION
  Report Type: Report from Study
  Country: US (occurrence: US)
  Receive Date: 20250508
  Receipt Date: 20250803
  Transmission Date: 20251020
  Serious: Yes (Hospitalization, Other)
  Sender: ALEXION PHARMACEUTICALS
  Company Number: US-AstraZeneca-CH-00861589A

PATIENT
  Age: 79 Year
  Sex: Male

DRUGS (1)
  1. OSIMERTINIB [Suspect]
     Active Substance: OSIMERTINIB
     Dosage: 80 MILLIGRAM, QD

REACTIONS (4)
  - Transient ischaemic attack [Unknown]
  - Syncope [Unknown]
  - Amnesia [Unknown]
  - Head injury [Unknown]

NARRATIVE: CASE EVENT DATE: 20250118
